FAERS Safety Report 14036144 (Version 1)
Quarter: 2017Q4

REPORT INFORMATION
  Report Type: Spontaneous
  Country: US (occurrence: US)
  Receive Date: 20171003
  Receipt Date: 20171003
  Transmission Date: 20180321
  Serious: No
  Sender: FDA-Public Use
  Company Number: US-ROCHE-1834500

PATIENT
  Age: 55 Year
  Sex: Male

DRUGS (3)
  1. ZELBORAF [Suspect]
     Active Substance: VEMURAFENIB
     Indication: PRODUCT USED FOR UNKNOWN INDICATION
     Dosage: TAKE 4 TS (960 MG) BY MOUTH TWICE A DAY
     Route: 048
     Dates: start: 20160912, end: 20160919
  2. GLIPIZIDE. [Concomitant]
     Active Substance: GLIPIZIDE
     Route: 065
  3. METFORMIN [Concomitant]
     Active Substance: METFORMIN HYDROCHLORIDE
     Route: 065

REACTIONS (2)
  - Blood glucose increased [Recovered/Resolved]
  - Skin discolouration [Recovered/Resolved]

NARRATIVE: CASE EVENT DATE: 20160919
